FAERS Safety Report 8159122-4 (Version None)
Quarter: 2012Q1

REPORT INFORMATION
  Report Type: 
  Country: None (occurrence: None)
  Receive Date: 20120103
  Receipt Date: 20111122
  Transmission Date: 20120608
  Serious: No
  Sender: FDA-Public Use
  Company Number: AE-2011-003905

PATIENT
  Age: 69 Year
  Sex: Male
  Weight: 57.6068 kg

DRUGS (3)
  1. PEGASYS [Concomitant]
  2. INCIVEK [Suspect]
     Dosage: 2250 MG (750 MG, 3 IN 1 D),ORAL
     Route: 048
     Dates: start: 20111104, end: 20111105
  3. RIBAVIRIN [Concomitant]

REACTIONS (2)
  - NAUSEA [None]
  - DEPRESSED MOOD [None]
